FAERS Safety Report 6724656-3 (Version None)
Quarter: 2010Q2

REPORT INFORMATION
  Report Type: 
  Country: None (occurrence: None)
  Receive Date: 20100513
  Receipt Date: 20100503
  Transmission Date: 20101027
  Serious: Yes (Death, Hospitalization, Other)
  Sender: FDA-Public Use
  Company Number: IT-ABBOTT-10P-083-0635781-00

PATIENT
  Sex: Male

DRUGS (5)
  1. HUMIRA [Suspect]
     Indication: RHEUMATOID ARTHRITIS
     Route: 058
     Dates: start: 20070101, end: 20100217
  2. METHOTREXATO [Suspect]
     Indication: RHEUMATOID ARTHRITIS
     Route: 048
     Dates: start: 20080101, end: 20100118
  3. METHOTREXATO [Suspect]
     Route: 048
     Dates: start: 20100119, end: 20100217
  4. ARCOXIA [Concomitant]
     Indication: DRUG USE FOR UNKNOWN INDICATION
  5. ZOPRANOL [Concomitant]
     Indication: DRUG USE FOR UNKNOWN INDICATION

REACTIONS (5)
  - ACUTE HEPATIC FAILURE [None]
  - HAEMODYNAMIC INSTABILITY [None]
  - HEPATITIS [None]
  - PULMONARY ARTERY THROMBOSIS [None]
  - VIRAL TEST NEGATIVE [None]
